FAERS Safety Report 7985004-4 (Version None)
Quarter: 2011Q4

REPORT INFORMATION
  Report Type: 
  Country: None (occurrence: None)
  Receive Date: 20111216
  Receipt Date: 20111108
  Transmission Date: 20120403
  Serious: No
  Sender: FDA-Public Use
  Company Number: US-ALLERGAN-1114682US

PATIENT
  Sex: Female

DRUGS (1)
  1. LATISSE [Suspect]
     Indication: GROWTH OF EYELASHES
     Dosage: 2 GTT, QPM
     Route: 061
     Dates: start: 20110301

REACTIONS (4)
  - EYELID SKIN DRYNESS [None]
  - TRICHORRHEXIS [None]
  - MADAROSIS [None]
  - EXPIRED DRUG ADMINISTERED [None]
